FAERS Safety Report 10678820 (Version 2)
Quarter: 2014Q4

REPORT INFORMATION
  Report Type: Spontaneous
  Country: US (occurrence: US)
  Receive Date: 20141229
  Receipt Date: 20141230
  Transmission Date: 20150529
  Serious: No
  Sender: FDA-Public Use
  Company Number: US-PFIZER INC-2014356118

PATIENT
  Age: 74 Year
  Sex: Male
  Weight: 82 kg

DRUGS (23)
  1. IBUPROFEN. [Suspect]
     Active Substance: IBUPROFEN
     Indication: PAIN
     Dosage: 200 MG, THREE TIMES A DAY
     Dates: start: 201412
  2. FLOMAX RELIEF [Concomitant]
     Dosage: 0.4MG, UNK
     Route: 048
  3. POTASSIUM [Concomitant]
     Active Substance: POTASSIUM
     Indication: MINERAL SUPPLEMENTATION
     Dosage: 99 MG, TWICE A DAY
     Route: 048
  4. MAGNESIUM [Concomitant]
     Active Substance: MAGNESIUM
     Indication: BLOOD MAGNESIUM DECREASED
     Dosage: 400 MG, ONCE A DAY
     Route: 048
  5. HYDROCODONE [Suspect]
     Active Substance: HYDROCODONE
     Indication: PAIN IN EXTREMITY
     Dosage: 5 MG TABLET, ONE OR TWO TABLETS, TWICE A DAY, BY MOUTH, TOOK 2 TABLETS TWICE A DAY
     Route: 048
     Dates: start: 20141216
  6. SAW PALMETTO [Concomitant]
     Active Substance: SAW PALMETTO
     Indication: PROSTATIC DISORDER
     Dosage: 900 MG, TWICE A DAY
     Route: 048
  7. MAGNESIUM/ZINC [Concomitant]
     Indication: BLOOD MAGNESIUM DECREASED
     Dosage: UNK, AS NEEDED
     Route: 048
  8. LISINOPRIL. [Concomitant]
     Active Substance: LISINOPRIL
     Indication: BLOOD PRESSURE ABNORMAL
     Dosage: 10 MG, ONCE A DAY
     Route: 048
  9. MULTIVITAMINS [Concomitant]
     Active Substance: VITAMINS
     Dosage: UNK, ONE A DAY
     Route: 048
  10. FLOMAX RELIEF [Concomitant]
     Indication: PROSTATIC DISORDER
     Dosage: 0.04 MG, 1X/DAY
     Route: 048
  11. VITAMIN C WITH ROSEHIPS AND BIOFLAVONOIDS [Concomitant]
     Indication: NASOPHARYNGITIS
     Dosage: UNK, THREE TIMES IN MORNING
     Route: 048
  12. PROSCAR [Concomitant]
     Active Substance: FINASTERIDE
     Indication: PROSTATIC DISORDER
     Dosage: 5 MG, ONCE A DAY
     Route: 048
  13. IBUPROFEN. [Suspect]
     Active Substance: IBUPROFEN
     Indication: PAIN IN EXTREMITY
     Dosage: 600 MG, 3X/DAY (200 MG LIQUID FILLED CAPSULE)
     Route: 048
     Dates: start: 201412
  14. ATENOLOL. [Concomitant]
     Active Substance: ATENOLOL
     Indication: HYPERTENSION
     Dosage: 25 MG, ONCE A DAY
     Route: 048
  15. VITAMIN C WITH ROSEHIPS AND BIOFLAVONOIDS [Concomitant]
     Dosage: 1000 MG, 3X/DAY
     Route: 048
  16. ASPIRIN ^BAYER^ [Concomitant]
     Active Substance: ASPIRIN
     Indication: CARDIAC DISORDER
     Dosage: 81 MG, ONCE A DAY
     Route: 048
  17. OMEGA 3 [Concomitant]
     Active Substance: OMEGA-3 FATTY ACIDS
     Dosage: 1000 MG, TWICE A DAY
  18. HYDROCHLOROTHIAZIDE. [Concomitant]
     Active Substance: HYDROCHLOROTHIAZIDE
     Dosage: 25 MG, ONCE A DAY
     Route: 048
  19. TYLENOL [Suspect]
     Active Substance: ACETAMINOPHEN
     Indication: PAIN
     Dosage: 500MG TWO TABLETS, AS NEEDED (TWO OR THREE TIMES A DAY)
     Route: 048
     Dates: start: 201412
  20. TYLENOL [Suspect]
     Active Substance: ACETAMINOPHEN
     Indication: PAIN IN EXTREMITY
  21. CHROMIUM/CINNAMON [Concomitant]
     Indication: PROPHYLAXIS
     Dosage: 100MCG/1000MG, TWICE A DAY
     Route: 048
  22. MAGNESIUM/ZINC [Concomitant]
     Dosage: 400 MG, 2X/DAY
     Route: 048
  23. HYDROCODONE [Suspect]
     Active Substance: HYDROCODONE
     Indication: PAIN
     Dosage: 325 MG, 1-2 TABLETS 2X/DAY AS NEEDED
     Dates: start: 201412

REACTIONS (1)
  - Drug ineffective [Recovering/Resolving]

NARRATIVE: CASE EVENT DATE: 20141216
